FAERS Safety Report 16658341 (Version 1)
Quarter: 2019Q3

REPORT INFORMATION
  Report Type: Spontaneous
  Country: GB (occurrence: GB)
  Receive Date: 20190801
  Receipt Date: 20190801
  Transmission Date: 20191004
  Serious: Yes (Hospitalization)
  Sender: FDA-Public Use
  Company Number: GB-MYLANLABS-2019M1071822

PATIENT

DRUGS (3)
  1. CITALOPRAM [Suspect]
     Active Substance: CITALOPRAM HYDROBROMIDE
     Dosage: DOSE: TOOK 20 MG FOR A MONTH THEN INCREASED TO 30 MG DAILY
  2. COCODAMOL [Suspect]
     Active Substance: ACETAMINOPHEN\CODEINE PHOSPHATE
     Indication: PRODUCT USED FOR UNKNOWN INDICATION
     Dosage: STRENGTH: 30/500 MG
  3. CITALOPRAM [Suspect]
     Active Substance: CITALOPRAM HYDROBROMIDE
     Indication: DEPRESSION
     Dosage: DOSE: TOOK 20 MG FOR A MONTH THEN INCREASED TO 30 MG DAILY

REACTIONS (4)
  - Nerve injury [Unknown]
  - Fall [Unknown]
  - Cervical vertebral fracture [Unknown]
  - Vertigo [Unknown]

NARRATIVE: CASE EVENT DATE: 20180620
